FAERS Safety Report 14615125 (Version 4)
Quarter: 2018Q2

REPORT INFORMATION
  Report Type: Spontaneous
  Country: JP (occurrence: JP)
  Receive Date: 20180308
  Receipt Date: 20180411
  Transmission Date: 20180711
  Serious: Yes (Other)
  Sender: FDA-Public Use
  Company Number: JP-PFIZER INC-2018090636

PATIENT
  Age: 92 Year
  Sex: Female

DRUGS (10)
  1. ANCARON [Suspect]
     Active Substance: AMIODARONE HYDROCHLORIDE
     Dosage: 400 MG, 1X/DAY (400 MG/DAY, TWICE DAILY)
     Route: 048
     Dates: start: 20160804
  2. ANCARON [Suspect]
     Active Substance: AMIODARONE HYDROCHLORIDE
     Dosage: 400 MG, 1X/DAY (400 MG/DAY, TWICE DAILY)
     Route: 048
     Dates: start: 20170912
  3. TENELIA [Concomitant]
     Active Substance: TENELIGLIPTIN
     Dosage: UNK
  4. ANCARON [Suspect]
     Active Substance: AMIODARONE HYDROCHLORIDE
     Dosage: 100 MG, 1X/DAY (100 MG/DAY, TWICE DAILY)
     Route: 048
     Dates: start: 20161026
  5. ANCARON [Suspect]
     Active Substance: AMIODARONE HYDROCHLORIDE
     Dosage: 200 MG, 1X/DAY ( 200 MG/DAY, TWICE DAILY)
     Route: 048
     Dates: start: 20180220
  6. LASIX [Concomitant]
     Active Substance: FUROSEMIDE
     Dosage: UNK
  7. ANCARON [Suspect]
     Active Substance: AMIODARONE HYDROCHLORIDE
     Dosage: 200 MG, 1X/DAY (100 AT A DOSE OF 200 MG/DAY, TWICE DAILY)
     Route: 048
     Dates: start: 20131027
  8. ANCARON [Suspect]
     Active Substance: AMIODARONE HYDROCHLORIDE
     Indication: ARRHYTHMIA
     Dosage: 400 MG, 1X/DAY ( 400 MG/DAY, TWICE DAILY)
     Route: 048
     Dates: start: 20130827, end: 20130827
  9. PRAVASTATIN SODIUM. [Concomitant]
     Active Substance: PRAVASTATIN SODIUM
     Dosage: UNK
  10. ALDACTONE-A [Concomitant]
     Active Substance: SPIRONOLACTONE
     Dosage: UNK

REACTIONS (3)
  - Alanine aminotransferase increased [Recovering/Resolving]
  - Aspartate aminotransferase increased [Recovering/Resolving]
  - Computerised tomogram abnormal [Unknown]

NARRATIVE: CASE EVENT DATE: 20180213
